FAERS Safety Report 4656092-8 (Version None)
Quarter: 2005Q2

REPORT INFORMATION
  Report Type: 
  Country: None (occurrence: None)
  Receive Date: 20050509
  Receipt Date: 20050428
  Transmission Date: 20051028
  Serious: Yes (Other)
  Sender: FDA-Public Use
  Company Number: CA-AMGEN-US129719

PATIENT
  Sex: Female
  Weight: 65 kg

DRUGS (6)
  1. ARANESP [Suspect]
     Indication: DIALYSIS
     Route: 042
     Dates: start: 20040830
  2. ISONIAZID [Suspect]
     Dates: start: 20041111, end: 20050420
  3. ALLOPURINOL [Suspect]
     Dates: end: 20050427
  4. CYCLOPHOSPHAMIDE [Suspect]
     Dates: start: 20010901, end: 20020401
  5. ADRIAMYCIN PFS [Suspect]
     Dates: start: 20010901, end: 20020401
  6. EPREX [Suspect]
     Indication: RENAL FAILURE CHRONIC
     Dates: start: 20010824, end: 20040827

REACTIONS (5)
  - APLASTIC ANAEMIA [None]
  - BONE MARROW DEPRESSION [None]
  - MYELODYSPLASTIC SYNDROME [None]
  - THERAPEUTIC RESPONSE DECREASED [None]
  - VIRAL INFECTION [None]
